FAERS Safety Report 6000087-9 (Version None)
Quarter: 2008Q4

REPORT INFORMATION
  Report Type: 
  Country: None (occurrence: None)
  Receive Date: 20081215
  Receipt Date: 20081208
  Transmission Date: 20090506
  Serious: Yes (Other)
  Sender: FDA-Public Use
  Company Number: B0549440A

PATIENT
  Sex: Female
  Weight: 0.9 kg

DRUGS (4)
  1. MODACIN [Suspect]
     Indication: INFECTION PROPHYLAXIS
     Dosage: 1G TWICE PER DAY
     Dates: start: 20080926, end: 20081002
  2. UTEMERIN [Concomitant]
     Dates: start: 20080926, end: 20081009
  3. UNKNOWN DRUG [Concomitant]
     Dates: start: 20080926, end: 20081010
  4. COCARL [Concomitant]
     Dates: start: 20080926

REACTIONS (2)
  - DRUG EXPOSURE DURING PREGNANCY [None]
  - SMALL FOR DATES BABY [None]
